FAERS Safety Report 5022745-5 (Version None)
Quarter: 2006Q2

REPORT INFORMATION
  Report Type: 
  Country: None (occurrence: None)
  Receive Date: 20060609
  Receipt Date: 20060606
  Transmission Date: 20061013
  Serious: Yes (Death)
  Sender: FDA-Public Use
  Company Number: RU-BOEHRINGER INGELHEIM PHARMACEUTICALS, INC.-2006-AP-00252AP

PATIENT
  Sex: Male

DRUGS (5)
  1. SPIRIVA [Suspect]
     Indication: CHRONIC OBSTRUCTIVE PULMONARY DISEASE
     Route: 055
     Dates: start: 20031114, end: 20040724
  2. SALBUTAMOL [Suspect]
     Route: 055
  3. SALMETEROL XINAFOATE [Concomitant]
  4. PREDNISOLONE [Concomitant]
  5. SALBUTAMOL SULPHATE [Concomitant]
     Indication: SMOKER

REACTIONS (2)
  - CARDIOPULMONARY FAILURE [None]
  - OVERDOSE [None]
